FAERS Safety Report 6338791-5 (Version None)
Quarter: 2009Q3

REPORT INFORMATION
  Report Type: 
  Country: None (occurrence: None)
  Receive Date: 20090903
  Receipt Date: 20090826
  Transmission Date: 20100115
  Serious: Yes (Other)
  Sender: FDA-Public Use
  Company Number: TR-JNJFOC-20090808287

PATIENT
  Age: 26 Month
  Sex: Female

DRUGS (2)
  1. TOPIRAMATE [Suspect]
     Dosage: 3 DAY INTERVALS
     Route: 048
  2. TOPIRAMATE [Suspect]
     Indication: DRUG USE FOR UNKNOWN INDICATION
     Route: 048

REACTIONS (3)
  - CONVULSION [None]
  - MYOCLONUS [None]
  - OVERDOSE [None]
